FAERS Safety Report 7822054-2 (Version None)
Quarter: 2011Q4

REPORT INFORMATION
  Report Type: 
  Country: None (occurrence: None)
  Receive Date: 20111018
  Receipt Date: 20111012
  Transmission Date: 20120403
  Serious: Yes (Disabling, Other)
  Sender: FDA-Public Use
  Company Number: PHEH2007US15534

PATIENT
  Sex: Female

DRUGS (4)
  1. DECADRON [Concomitant]
  2. SYNTHROID [Concomitant]
     Dosage: UNK UKN, UNK
  3. ZOMETA [Suspect]
     Dosage: UNK UKN, UNK
  4. DIOVAN [Concomitant]

REACTIONS (33)
  - AGRANULOCYTOSIS [None]
  - SEPSIS [None]
  - SQUAMOUS CELL CARCINOMA [None]
  - CHONDROMALACIA [None]
  - PAIN [None]
  - URINARY INCONTINENCE [None]
  - DENTAL PLAQUE [None]
  - PYELONEPHRITIS [None]
  - MULTIPLE MYELOMA [None]
  - PYREXIA [None]
  - DIVERTICULUM [None]
  - OSTEOARTHRITIS [None]
  - DEFORMITY [None]
  - LEUKOPENIA [None]
  - RENAL FAILURE ACUTE [None]
  - RECTAL TENESMUS [None]
  - OSTEOPENIA [None]
  - EXPOSED BONE IN JAW [None]
  - PLASMACYTOSIS [None]
  - SPINAL OSTEOARTHRITIS [None]
  - BACK PAIN [None]
  - ANAEMIA [None]
  - DYSPNOEA [None]
  - PLEURAL EFFUSION [None]
  - ANXIETY [None]
  - MONONUCLEOSIS SYNDROME [None]
  - URINARY TRACT INFECTION [None]
  - NEOPLASM MALIGNANT [None]
  - ARTHRALGIA [None]
  - OSTEONECROSIS OF JAW [None]
  - IMPAIRED HEALING [None]
  - FATIGUE [None]
  - DIABETES MELLITUS [None]
